FAERS Safety Report 8848141 (Version 2)
Quarter: 2015Q3

REPORT INFORMATION
  Report Type: Report from Study
  Country: US (occurrence: US)
  Receive Date: 20121018
  Receipt Date: 20150818
  Transmission Date: 20151125
  Serious: Yes (Hospitalization)
  Sender: FDA-Public Use
  Company Number: US-ROCHE-1131699

PATIENT
  Sex: Female
  Weight: 31.78 kg

DRUGS (5)
  1. SYNTHROID [Concomitant]
     Active Substance: LEVOTHYROXINE SODIUM
     Route: 065
  2. NUTROPIN AQ [Suspect]
     Active Substance: SOMATROPIN
     Route: 058
  3. NUTROPIN AQ [Suspect]
     Active Substance: SOMATROPIN
     Route: 058
  4. SYNTHROID [Concomitant]
     Active Substance: LEVOTHYROXINE SODIUM
     Route: 065
  5. NUTROPIN AQ [Suspect]
     Active Substance: SOMATROPIN
     Indication: GROWTH HORMONE DEFICIENCY
     Route: 058
     Dates: start: 199804

REACTIONS (4)
  - Delayed puberty [Unknown]
  - Growth retardation [Unknown]
  - Eating disorder [Unknown]
  - Weight abnormal [Unknown]
